FAERS Safety Report 7805648-X (Version None)
Quarter: 2011Q4

REPORT INFORMATION
  Report Type: 
  Country: None (occurrence: None)
  Receive Date: 20111010
  Receipt Date: 20111006
  Transmission Date: 20120403
  Serious: Yes (Hospitalization, Other)
  Sender: FDA-Public Use
  Company Number: US-BRISTOL-MYERS SQUIBB COMPANY-14000582

PATIENT
  Age: 55 Year
  Sex: Male
  Weight: 90 kg

DRUGS (3)
  1. ERBITUX [Suspect]
     Indication: HEAD AND NECK CANCER
     Dates: start: 20071008, end: 20071126
  2. DURAGESIC-100 [Concomitant]
  3. CISPLATIN [Suspect]
     Indication: HEAD AND NECK CANCER
     Dates: start: 20071008, end: 20071029

REACTIONS (4)
  - OROPHARYNGEAL PAIN [None]
  - OESOPHAGEAL PAIN [None]
  - COGNITIVE DISORDER [None]
  - HYPONATRAEMIA [None]
